FAERS Safety Report 19110956 (Version 1)
Quarter: 2021Q2

REPORT INFORMATION
  Report Type: Spontaneous
  Country: JP (occurrence: JP)
  Receive Date: 20210408
  Receipt Date: 20210408
  Transmission Date: 20210717
  Serious: Yes (Other)
  Sender: FDA-Public Use
  Company Number: JP-ROCHE-2805668

PATIENT
  Age: 46 Year
  Sex: Female

DRUGS (1)
  1. AVASTIN [Suspect]
     Active Substance: BEVACIZUMAB
     Indication: OVARIAN CANCER
     Dosage: DOSAGE WAS UNCERTAIN.
     Route: 041
     Dates: start: 202101

REACTIONS (1)
  - Periodontal disease [Unknown]

NARRATIVE: CASE EVENT DATE: 2021
